FAERS Safety Report 9334324 (Version 1)
Quarter: 2013Q2

REPORT INFORMATION
  Report Type: Spontaneous
  Country: CH (occurrence: None)
  Receive Date: 20130604
  Receipt Date: 20130604
  Transmission Date: 20140414
  Serious: Yes (Hospitalization)
  Sender: FDA-Public Use
  Company Number: FK201301825

PATIENT
  Age: 58 Year
  Sex: Female

DRUGS (3)
  1. ETOPOSIDE (ETOPOSIDE) [Suspect]
     Indication: SMALL CELL LUNG CANCER
  2. CISPLATIN [Suspect]
     Indication: SMALL CELL LUNG CANCER METASTATIC
  3. LETROZOLE [Suspect]
     Indication: BREAST CANCER

REACTIONS (2)
  - Cerebrovascular accident [None]
  - Hemianopia homonymous [None]
